FAERS Safety Report 24004706 (Version 3)
Quarter: 2024Q3

REPORT INFORMATION
  Report Type: Spontaneous
  Country: US (occurrence: US)
  Receive Date: 20240624
  Receipt Date: 20240913
  Transmission Date: 20241016
  Serious: No
  Sender: PFIZER
  Company Number: US-PFIZER INC-202400197017

PATIENT
  Age: 9 Year
  Sex: Female

DRUGS (2)
  1. GENOTROPIN [Suspect]
     Active Substance: SOMATROPIN
     Indication: Small for dates baby
     Dosage: 0.3 MG/DAY, 5 DAYS/WEEK, MONDAY THROUGH FRIDAY AND OFF SATURDAY AND SUNDAY
  2. GENOTROPIN [Suspect]
     Active Substance: SOMATROPIN
     Indication: Failure to thrive
     Dosage: 0.4 MG/DAY, 5 DAYS/WEEK, MONDAY THROUGH FRIDAY AND OFF SATURDAY AND SUNDAY

REACTIONS (3)
  - Device power source issue [Unknown]
  - Device issue [Unknown]
  - Device information output issue [Unknown]

NARRATIVE: CASE EVENT DATE: 20240617
